FAERS Safety Report 24208738 (Version 3)
Quarter: 2025Q3

REPORT INFORMATION
  Report Type: Spontaneous
  Country: US (occurrence: US)
  Receive Date: 20240814
  Receipt Date: 20250915
  Transmission Date: 20251020
  Serious: Yes (Hospitalization)
  Sender: SANDOZ
  Company Number: US-SANDOZ-SDZ2024US072511

PATIENT
  Age: 81 Year
  Sex: Female

DRUGS (2)
  1. ZARXIO [Suspect]
     Active Substance: FILGRASTIM-SNDZ
     Indication: Neutropenia
     Dosage: 300 ?G (MICROGRAM) ,THREE TIMES A WEEK
     Route: 058
  2. ZARXIO [Suspect]
     Active Substance: FILGRASTIM-SNDZ
     Dosage: 300 UG, BIW
     Route: 058
     Dates: start: 20250211

REACTIONS (2)
  - Pulmonary mass [Unknown]
  - Chills [Unknown]

NARRATIVE: CASE EVENT DATE: 20250825
